FAERS Safety Report 19102030 (Version 4)
Quarter: 2021Q2

REPORT INFORMATION
  Report Type: Spontaneous
  Country: FR (occurrence: FR)
  Receive Date: 20210407
  Receipt Date: 20210519
  Transmission Date: 20210717
  Serious: Yes (Life-Threatening, Hospitalization)
  Sender: FDA-Public Use
  Company Number: FR-BAYER-2021-118056

PATIENT
  Age: 72 Year
  Sex: Male
  Weight: 70 kg

DRUGS (5)
  1. PROPOFOL. [Concomitant]
     Active Substance: PROPOFOL
     Indication: PRODUCT USED FOR UNKNOWN INDICATION
     Dosage: UNK
     Route: 065
  2. KETAMINE [Concomitant]
     Active Substance: KETAMINE
     Indication: PRODUCT USED FOR UNKNOWN INDICATION
     Dosage: UNK
     Route: 065
  3. APROTININ [Suspect]
     Active Substance: APROTININ
     Indication: BENTALL PROCEDURE
     Dosage: 2500000 INTERNATIONAL UNIT TOTAL LOADING DOSE 1 MILLION IU PUMP PRIMING DOSE 1 MILLION IU MAINTENANC
     Route: 042
     Dates: start: 20210325, end: 20210325
  4. SUFENTA [Concomitant]
     Active Substance: SUFENTANIL CITRATE
     Indication: PRODUCT USED FOR UNKNOWN INDICATION
     Dosage: UNK
     Route: 065
  5. HEPARIN [Concomitant]
     Active Substance: HEPARIN SODIUM
     Indication: PRODUCT USED FOR UNKNOWN INDICATION
     Dosage: UNK
     Route: 065

REACTIONS (3)
  - Off label use [None]
  - Product use in unapproved indication [Unknown]
  - Ischaemic cerebral infarction [Not Recovered/Not Resolved]

NARRATIVE: CASE EVENT DATE: 20210325
